FAERS Safety Report 10077148 (Version 1)
Quarter: 2014Q2

REPORT INFORMATION
  Report Type: Spontaneous
  Country: FR (occurrence: FR)
  Receive Date: 20140414
  Receipt Date: 20140414
  Transmission Date: 20141212
  Serious: Yes (Hospitalization, Other)
  Sender: FDA-Public Use
  Company Number: FR-ELI_LILLY_AND_COMPANY-FR201404001603

PATIENT
  Age: 76 Year
  Sex: Female

DRUGS (4)
  1. GEMZAR [Suspect]
     Indication: MUCINOUS CYSTADENOCARCINOMA OF PANCREAS
     Dosage: UNK
     Route: 042
     Dates: start: 200810, end: 200906
  2. GEMZAR [Suspect]
     Indication: MALIGNANT NEOPLASM PROGRESSION
     Dosage: UNK
     Route: 042
     Dates: start: 2013, end: 20140221
  3. XELODA [Concomitant]
     Indication: METASTASIS
     Dosage: UNK
     Route: 065
     Dates: start: 201101
  4. FOLFOX-4 (FLUOROURACIL, FOLINIC ACID, OXALIPLATIN) [Concomitant]
     Indication: MALIGNANT NEOPLASM PROGRESSION
     Dosage: UNK
     Dates: start: 201209

REACTIONS (6)
  - Pericardial effusion [Unknown]
  - Pleural effusion [Unknown]
  - Haemolytic uraemic syndrome [Recovered/Resolved]
  - Respiratory distress [Unknown]
  - Malignant neoplasm progression [Unknown]
  - Hypertension [Recovered/Resolved]
